FAERS Safety Report 10567488 (Version 1)
Quarter: 2014Q4

REPORT INFORMATION
  Report Type: Spontaneous
  Country: US (occurrence: US)
  Receive Date: 20141106
  Receipt Date: 20141106
  Transmission Date: 20150529
  Serious: No
  Sender: FDA-Public Use
  Company Number: US-AMGEN INC.-USASP2014084265

PATIENT
  Age: 50 Year
  Sex: Male
  Weight: 87 kg

DRUGS (7)
  1. METHOTREXATE [Suspect]
     Active Substance: METHOTREXATE
     Indication: ARTHRITIS
     Dosage: 1 DF, QD
     Route: 048
     Dates: start: 201408, end: 201408
  2. METFORMIN [Concomitant]
     Active Substance: METFORMIN HYDROCHLORIDE
     Indication: DIABETES MELLITUS
     Dosage: UNK UNK, TWICE A DAY
  3. HYDROCHLOROTHIAZIDE. [Concomitant]
     Active Substance: HYDROCHLOROTHIAZIDE
     Indication: HYPERTENSION
     Dosage: UNK UNK, QD
  4. ENBREL [Suspect]
     Active Substance: ETANERCEPT
     Indication: ARTHRITIS
     Dosage: UNK UNK, QWK ON TUESDAY
     Route: 065
     Dates: start: 201408, end: 201408
  5. PROAIR HFA [Concomitant]
     Active Substance: ALBUTEROL SULFATE
     Indication: ASTHMA
     Dosage: UNK UNK, AS NECESSARY
  6. LOTREL [Concomitant]
     Active Substance: AMLODIPINE BESYLATE\BENAZEPRIL HYDROCHLORIDE
     Indication: FLUID RETENTION
     Dosage: UNK UNK, DAILY
  7. WELLBUTRIN [Concomitant]
     Active Substance: BUPROPION HYDROCHLORIDE
     Indication: DEPRESSION
     Dosage: UNK UNK, DAILY

REACTIONS (9)
  - Swelling [Recovering/Resolving]
  - Arthralgia [Not Recovered/Not Resolved]
  - Mobility decreased [Unknown]
  - Pain in extremity [Unknown]
  - Musculoskeletal stiffness [Not Recovered/Not Resolved]
  - Neck pain [Unknown]
  - Joint stiffness [Unknown]
  - Musculoskeletal pain [Unknown]
  - Peripheral swelling [Unknown]

NARRATIVE: CASE EVENT DATE: 2014
